FAERS Safety Report 20425491 (Version 1)
Quarter: 2022Q1

REPORT INFORMATION
  Report Type: Report from Study
  Country: CA (occurrence: CA)
  Receive Date: 20220204
  Receipt Date: 20220204
  Transmission Date: 20220424
  Serious: No
  Sender: FDA-Public Use
  Company Number: CA-EXELIXIS-CABO-21038708

PATIENT
  Sex: Male

DRUGS (19)
  1. CABOMETYX [Suspect]
     Active Substance: CABOZANTINIB S-MALATE
     Indication: Renal cell carcinoma
     Dosage: 60 MG, QD
     Route: 048
     Dates: start: 20201202
  2. XARELTO [Concomitant]
     Active Substance: RIVAROXABAN
  3. AMLODIPINE [Concomitant]
     Active Substance: AMLODIPINE BESYLATE
  4. ASPIRIN [Concomitant]
     Active Substance: ASPIRIN
  5. CALCIUM [Concomitant]
     Active Substance: CALCIUM
  6. PANTOPRAZOLE [Concomitant]
     Active Substance: PANTOPRAZOLE
  7. MURO 128 [Concomitant]
     Active Substance: SODIUM CHLORIDE
  8. PREDNISONE [Concomitant]
     Active Substance: PREDNISONE
  9. PROCHLORAZINE [Concomitant]
  10. ALBUTEROL [Concomitant]
     Active Substance: ALBUTEROL
  11. UREDERMA 20% [Concomitant]
  12. SYNTHROID [Concomitant]
     Active Substance: LEVOTHYROXINE SODIUM
  13. CHOLECALCIFEROL [Concomitant]
     Active Substance: CHOLECALCIFEROL
  14. DIPHENHYDRAMINE [Concomitant]
     Active Substance: DIPHENHYDRAMINE
  15. PROCHLORPERAZINE [Concomitant]
     Active Substance: PROCHLORPERAZINE
  16. XERACALM A.D [Concomitant]
  17. CORTEF [Concomitant]
     Active Substance: HYDROCORTISONE
  18. METOCLOPRAMIDE [Concomitant]
     Active Substance: METOCLOPRAMIDE
  19. LOPERAMIDE [Concomitant]
     Active Substance: LOPERAMIDE

REACTIONS (6)
  - Hair disorder [Unknown]
  - Rhinorrhoea [Unknown]
  - Dry skin [Unknown]
  - Dyspepsia [Recovered/Resolved]
  - Diarrhoea [Unknown]
  - Muscle spasms [Unknown]
